FAERS Safety Report 9306335 (Version 1)
Quarter: 2013Q2

REPORT INFORMATION
  Report Type: Spontaneous
  Country: FR (occurrence: None)
  Receive Date: 20130520
  Receipt Date: 20130520
  Transmission Date: 20140414
  Serious: Yes (Hospitalization)
  Sender: FDA-Public Use
  Company Number: 1707904

PATIENT
  Age: 66 Year
  Sex: Female

DRUGS (4)
  1. CARBOPLATIN [Suspect]
     Indication: OVARIAN CANCER
     Dates: start: 20130319, end: 20130319
  2. METHYLPREDNISOLONE - MERCK [Concomitant]
  3. ZOPHREN [Concomitant]
  4. POLARAMINE [Concomitant]

REACTIONS (10)
  - Nausea [None]
  - Infusion site reaction [None]
  - Chest pain [None]
  - Pruritus [None]
  - Erythema [None]
  - Erythema [None]
  - Rash [None]
  - Muscle spasms [None]
  - Asthenia [None]
  - Pruritus [None]
